FAERS Safety Report 25423694 (Version 1)
Quarter: 2025Q2

REPORT INFORMATION
  Report Type: Spontaneous
  Country: GB (occurrence: GB)
  Receive Date: 20250611
  Receipt Date: 20250611
  Transmission Date: 20250716
  Serious: Yes (Other)
  Sender: AMGEN
  Company Number: GB-AMGEN-GBRSP2025111598

PATIENT
  Sex: Female
  Weight: 62 kg

DRUGS (6)
  1. REPATHA [Suspect]
     Active Substance: EVOLOCUMAB
     Indication: Adverse drug reaction
     Dosage: 140 MILLIGRAM, Q2WK
     Route: 065
     Dates: start: 20250403, end: 20250527
  2. ATORVASTATIN [Concomitant]
     Active Substance: ATORVASTATIN
     Route: 065
  3. EZETIMIBE [Concomitant]
     Active Substance: EZETIMIBE
     Route: 065
  4. ASPIRIN [Concomitant]
     Active Substance: ASPIRIN
     Route: 065
  5. OMEPRAZOLE [Concomitant]
     Active Substance: OMEPRAZOLE
     Route: 065
  6. AMLODIPINE [Concomitant]
     Active Substance: AMLODIPINE BESYLATE
     Route: 065

REACTIONS (5)
  - Vomiting [Recovering/Resolving]
  - Lethargy [Recovering/Resolving]
  - Abdominal discomfort [Recovering/Resolving]
  - Aphonia [Recovering/Resolving]
  - Influenza like illness [Recovering/Resolving]

NARRATIVE: CASE EVENT DATE: 20250517
